FAERS Safety Report 7301902-9 (Version None)
Quarter: 2011Q1

REPORT INFORMATION
  Report Type: 
  Country: None (occurrence: None)
  Receive Date: 20110218
  Receipt Date: 20110216
  Transmission Date: 20110831
  Serious: Yes (Hospitalization)
  Sender: FDA-Public Use
  Company Number: IL-ROCHE-757102

PATIENT
  Sex: Female
  Weight: 60 kg

DRUGS (3)
  1. METHOTREXATE [Concomitant]
     Dosage: DOSE:15, FREQUENCY: WEEKLY
     Route: 030
  2. ACTEMRA [Suspect]
     Indication: RHEUMATOID ARTHRITIS
     Dosage: LAST DOSE PRIOR TO SAE: 4 JAN 2011
     Route: 042
     Dates: start: 20100722
  3. FOLIC ACID [Concomitant]
     Dosage: DOSE:5
     Route: 048

REACTIONS (1)
  - MYOCARDIAL INFARCTION [None]
